FAERS Safety Report 18281123 (Version 4)
Quarter: 2021Q4

REPORT INFORMATION
  Report Type: Report from Study
  Country: JP (occurrence: JP)
  Receive Date: 20200918
  Receipt Date: 20211001
  Transmission Date: 20220303
  Serious: Yes (Other)
  Sender: FDA-Public Use
  Company Number: JP-VIIV HEALTHCARE LIMITED-JP2015JPN108804

PATIENT
  Age: 51 Year
  Sex: Male

DRUGS (3)
  1. DOLUTEGRAVIR [Suspect]
     Active Substance: DOLUTEGRAVIR
     Indication: HIV infection
     Dosage: 50 MG, 1D
     Route: 048
     Dates: start: 20141210, end: 20210309
  2. EPZICOM [Suspect]
     Active Substance: ABACAVIR SULFATE\LAMIVUDINE
     Indication: HIV infection
     Dosage: 1 DF, 1D
     Route: 048
     Dates: start: 20141210, end: 20210309
  3. JULUCA [Concomitant]
     Active Substance: DOLUTEGRAVIR SODIUM\RILPIVIRINE HYDROCHLORIDE
     Indication: HIV infection
     Dosage: 1 DF, 1D
     Dates: start: 20210309

REACTIONS (2)
  - Blood creatinine increased [Not Recovered/Not Resolved]
  - Hypothyroidism [Not Recovered/Not Resolved]

NARRATIVE: CASE EVENT DATE: 20150105
